FAERS Safety Report 17712656 (Version 1)
Quarter: 2020Q2

REPORT INFORMATION
  Report Type: Spontaneous
  Country: GR (occurrence: GR)
  Receive Date: 20200427
  Receipt Date: 20200427
  Transmission Date: 20200714
  Serious: Yes (Hospitalization, Other)
  Sender: FDA-Public Use
  Company Number: GR-AMGEN-GRCSP2020065582

PATIENT
  Sex: Male

DRUGS (15)
  1. PREDNISONE. [Concomitant]
     Active Substance: PREDNISONE
     Dosage: 40 MILLIGRAM, QD
  2. CALCIUM CARBONATE. [Concomitant]
     Active Substance: CALCIUM CARBONATE
     Dosage: 1500 MILLIGRAM, QD
     Dates: start: 201701
  3. PARICALCITOL. [Concomitant]
     Active Substance: PARICALCITOL
     Dosage: 5.0 MICROGRAM/HD
     Route: 042
     Dates: start: 201301
  4. PARICALCITOL. [Concomitant]
     Active Substance: PARICALCITOL
     Dosage: 5.0 MICROGRAM/HD
     Route: 042
     Dates: start: 201701
  5. CINACALCET HCL [Suspect]
     Active Substance: CINACALCET HYDROCHLORIDE
     Indication: HYPERPARATHYROIDISM SECONDARY
     Dosage: UNK
     Route: 048
  6. TAMOXIFEN [Concomitant]
     Active Substance: TAMOXIFEN
     Dosage: 20 MILLIGRAM, QD
  7. VITAMINE D [Concomitant]
     Active Substance: CHOLECALCIFEROL
  8. PARICALCITOL. [Concomitant]
     Active Substance: PARICALCITOL
     Dosage: 7.5 MICROGRAM/HD
     Route: 042
     Dates: start: 201901
  9. CALCIUM CARBONATE. [Concomitant]
     Active Substance: CALCIUM CARBONATE
     Dosage: 1500 MILLIGRAM, QD
     Dates: start: 201501
  10. CALCIUM CARBONATE. [Concomitant]
     Active Substance: CALCIUM CARBONATE
     Dosage: 3000 MILLIGRAM, QD
     Dates: start: 201901
  11. PARICALCITOL. [Concomitant]
     Active Substance: PARICALCITOL
     Dosage: 7.5 MICROGRAM/HD
     Route: 042
     Dates: start: 201201
  12. CALCIUM CARBONATE. [Concomitant]
     Active Substance: CALCIUM CARBONATE
     Dosage: 1500 MILLIGRAM, QD
     Dates: start: 201301
  13. PARICALCITOL. [Concomitant]
     Active Substance: PARICALCITOL
     Dosage: 5.0 MICROGRAM/HD
     Route: 042
     Dates: start: 201501
  14. CALCIUM CARBONATE. [Concomitant]
     Active Substance: CALCIUM CARBONATE
     Indication: HYPERPARATHYROIDISM SECONDARY
     Dosage: 1500 MILLIGRAM, QD
     Dates: start: 201201
  15. PARICALCITOL. [Concomitant]
     Active Substance: PARICALCITOL
     Indication: HYPERPARATHYROIDISM SECONDARY
     Dosage: 2.5 MICROGRAM/HD
     Route: 042
     Dates: start: 201006

REACTIONS (1)
  - Encapsulating peritoneal sclerosis [Recovering/Resolving]

NARRATIVE: CASE EVENT DATE: 200911
